FAERS Safety Report 13355083 (Version 1)
Quarter: 2017Q1

REPORT INFORMATION
  Report Type: Spontaneous
  Country: US (occurrence: US)
  Receive Date: 20170321
  Receipt Date: 20170321
  Transmission Date: 20170429
  Serious: Yes (Other)
  Sender: FDA-Public Use
  Company Number: US-AKORN PHARMACEUTICALS-2017AKN00312

PATIENT
  Sex: Female
  Weight: 51.7 kg

DRUGS (2)
  1. MYORISAN [Suspect]
     Active Substance: ISOTRETINOIN
     Dosage: 60 MG, 1X/DAY WITH A FATTY MEAL
     Dates: start: 20161129, end: 20170307
  2. MYORISAN [Suspect]
     Active Substance: ISOTRETINOIN
     Indication: ACNE
     Dosage: UNK
     Dates: start: 20161025

REACTIONS (6)
  - Suicidal ideation [Unknown]
  - Hallucination, auditory [Unknown]
  - Mood altered [Unknown]
  - Inappropriate schedule of drug administration [Recovered/Resolved]
  - Depressed mood [Unknown]
  - Hallucination, visual [Unknown]
